FAERS Safety Report 16985620 (Version 1)
Quarter: 2019Q4

REPORT INFORMATION
  Report Type: Spontaneous
  Country: US (occurrence: US)
  Receive Date: 20191101
  Receipt Date: 20191101
  Transmission Date: 20200122
  Serious: No
  Sender: FDA-Public Use
  Company Number: US-SA-2019SA297771

PATIENT
  Age: 61 Year
  Sex: Female

DRUGS (1)
  1. LANTUS SOLOSTAR [Suspect]
     Active Substance: INSULIN GLARGINE
     Indication: TYPE 2 DIABETES MELLITUS
     Dosage: 40 U, QD
     Route: 065
     Dates: start: 201712

REACTIONS (7)
  - Weight decreased [Unknown]
  - Feeling hot [Unknown]
  - Dizziness [Unknown]
  - Blood glucose abnormal [Unknown]
  - Paraesthesia [Unknown]
  - Feeling abnormal [Unknown]
  - Insomnia [Unknown]
